FAERS Safety Report 9116737 (Version 1)
Quarter: 2013Q1

REPORT INFORMATION
  Report Type: Spontaneous
  Country: US (occurrence: US)
  Receive Date: 20130225
  Receipt Date: 20130225
  Transmission Date: 20140127
  Serious: No
  Sender: FDA-Public Use
  Company Number: US-ENDO PHARMACEUTICALS INC.-FORT20110042

PATIENT
  Sex: Male
  Weight: 98.52 kg

DRUGS (2)
  1. FORTESTA [Suspect]
     Indication: HYPOGONADISM
     Route: 061
     Dates: start: 20110517, end: 201108
  2. FORTESTA [Suspect]
     Route: 061
     Dates: start: 20110830

REACTIONS (4)
  - Application site dryness [Recovering/Resolving]
  - Application site pain [Recovering/Resolving]
  - Application site irritation [Recovering/Resolving]
  - Application site erythema [Recovering/Resolving]
